FAERS Safety Report 24587314 (Version 5)
Quarter: 2025Q2

REPORT INFORMATION
  Report Type: Report from Study
  Country: CA (occurrence: CA)
  Receive Date: 20241107
  Receipt Date: 20250410
  Transmission Date: 20250717
  Serious: Yes (Hospitalization, Other)
  Sender: TAKEDA
  Company Number: CA-TAKEDA-2024TUS111498

PATIENT
  Sex: Male

DRUGS (4)
  1. VEDOLIZUMAB [Suspect]
     Active Substance: VEDOLIZUMAB
     Indication: Colitis ulcerative
  2. VEDOLIZUMAB [Suspect]
     Active Substance: VEDOLIZUMAB
  3. Salofalk [Concomitant]
     Dosage: 3000 MILLIGRAM, QD
     Dates: start: 200612
  4. BUDESONIDE [Concomitant]
     Active Substance: BUDESONIDE
     Dosage: 9 MILLIGRAM, QD

REACTIONS (4)
  - Haematochezia [Not Recovered/Not Resolved]
  - Gastrointestinal inflammation [Unknown]
  - Malaise [Unknown]
  - Therapy non-responder [Unknown]
